FAERS Safety Report 15744199 (Version 1)
Quarter: 2018Q4

REPORT INFORMATION
  Report Type: Report from Study
  Country: None (occurrence: US)
  Receive Date: 20181220
  Receipt Date: 20181220
  Transmission Date: 20190205
  Serious: Yes (Other)
  Sender: FDA-Public Use
  Company Number: US-ABBVIE-18K-163-2596114-00

PATIENT
  Age: 58 Year
  Sex: Female

DRUGS (1)
  1. HUMIRA [Suspect]
     Active Substance: ADALIMUMAB
     Indication: RHEUMATOID ARTHRITIS
     Route: 058
     Dates: end: 2015

REACTIONS (9)
  - Hand deformity [Unknown]
  - Knee deformity [Unknown]
  - Osteoarthritis [Unknown]
  - Elbow deformity [Unknown]
  - Wrong technique in product usage process [Unknown]
  - Mobility decreased [Unknown]
  - Nodule [Unknown]
  - Foot deformity [Unknown]
  - Arthropathy [Unknown]

NARRATIVE: CASE EVENT DATE: 20181127
